FAERS Safety Report 6528797-5 (Version None)
Quarter: 2010Q1

REPORT INFORMATION
  Report Type: 
  Country: None (occurrence: None)
  Receive Date: 20100106
  Receipt Date: 20091207
  Transmission Date: 20100710
  Serious: No
  Sender: FDA-Public Use
  Company Number: US-BAYER-200917617BCC

PATIENT
  Sex: Female
  Weight: 69 kg

DRUGS (3)
  1. ALEVE (CAPLET) [Suspect]
     Indication: ARTHRITIS
     Dosage: UNIT DOSE: 220 MG
     Route: 048
     Dates: start: 20091206
  2. VICODIN [Concomitant]
     Route: 065
  3. IBUPROFEN [Concomitant]
     Route: 065

REACTIONS (6)
  - ABDOMINAL DISCOMFORT [None]
  - COGNITIVE DISORDER [None]
  - DIZZINESS [None]
  - DYSPNOEA [None]
  - NAUSEA [None]
  - SOMNOLENCE [None]
